FAERS Safety Report 18763523 (Version 1)
Quarter: 2021Q1

REPORT INFORMATION
  Report Type: Spontaneous
  Country: US (occurrence: US)
  Receive Date: 20210120
  Receipt Date: 20210120
  Transmission Date: 20210419
  Serious: Yes (Hospitalization, Other)
  Sender: FDA-Public Use
  Company Number: US-SUN PHARMACEUTICAL INDUSTRIES LTD-2021R1-276183

PATIENT
  Age: 69 Year
  Sex: Female

DRUGS (1)
  1. DULOXETINE. [Suspect]
     Active Substance: DULOXETINE
     Indication: FIBROMYALGIA
     Dosage: 60 MILLIGRAM, DAILY
     Route: 065

REACTIONS (3)
  - Atrial tachycardia [Recovering/Resolving]
  - Cyanosis [Recovered/Resolved]
  - Atrial fibrillation [Recovering/Resolving]
